FAERS Safety Report 18048526 (Version 2)
Quarter: 2020Q3

REPORT INFORMATION
  Report Type: Spontaneous
  Country: DE (occurrence: DE)
  Receive Date: 20200721
  Receipt Date: 20200801
  Transmission Date: 20201103
  Serious: Yes (Hospitalization)
  Sender: FDA-Public Use
  Company Number: NVSC2020DE201611

PATIENT
  Sex: Male
  Weight: 40.4 kg

DRUGS (1)
  1. SECUKINUMAB. [Suspect]
     Active Substance: SECUKINUMAB
     Indication: JUVENILE IDIOPATHIC ARTHRITIS
     Dosage: 75 MG, Q4W
     Route: 065
     Dates: start: 20181026

REACTIONS (5)
  - Cellulitis [Recovered/Resolved]
  - Wound infection [Recovered/Resolved]
  - Ankle deformity [Recovered/Resolved]
  - Product use in unapproved indication [Not Recovered/Not Resolved]
  - Haematuria [Not Recovered/Not Resolved]

NARRATIVE: CASE EVENT DATE: 20181026
